FAERS Safety Report 13872219 (Version 1)
Quarter: 2017Q3

REPORT INFORMATION
  Report Type: Report from Study
  Country: DE (occurrence: DE)
  Receive Date: 20170816
  Receipt Date: 20170816
  Transmission Date: 20171127
  Serious: Yes (Congenital Anomaly, Other)
  Sender: FDA-Public Use
  Company Number: DE-MYLANLABS-2017M1050094

PATIENT

DRUGS (6)
  1. NIFEDIPINE. [Concomitant]
     Active Substance: NIFEDIPINE
     Indication: HYPERTENSION
     Dosage: RECEIVED FROM 0-28 WEEK OF GESTATION
     Route: 064
  2. MEFENAMIC ACID. [Concomitant]
     Active Substance: MEFENAMIC ACID
     Indication: MIGRAINE
     Dosage: RECEIVED FROM 0-29 WEEK OF GESTATION
     Route: 064
  3. PARACETAMOL [Concomitant]
     Active Substance: ACETAMINOPHEN
     Indication: MIGRAINE
     Dosage: RECEIVED FROM 29+6 WEEK OF GESTATION
     Route: 064
  4. PANTOPRAZOLE [Concomitant]
     Active Substance: PANTOPRAZOLE
     Indication: PROPHYLAXIS
     Dosage: RECEIVED FROM 0-29+6 WEEK OF GESTATION
     Route: 064
  5. METHYLDOPA. [Suspect]
     Active Substance: METHYLDOPA
     Indication: HYPERTENSION
     Dosage: 750MG/DAY
     Route: 064
  6. METOPROLOL. [Concomitant]
     Active Substance: METOPROLOL
     Indication: HYPERTENSION
     Dosage: RECEIVED FROM 0-29+6 WEEK OF GESTATION
     Route: 064

REACTIONS (2)
  - Foetal exposure during pregnancy [Unknown]
  - Atrial septal defect [Unknown]
